FAERS Safety Report 7750012-5 (Version None)
Quarter: 2011Q3

REPORT INFORMATION
  Report Type: 
  Country: None (occurrence: None)
  Receive Date: 20110914
  Receipt Date: 20110906
  Transmission Date: 20111222
  Serious: Yes (Other)
  Sender: FDA-Public Use
  Company Number: US-AMGEN-USASP2011003592

PATIENT
  Age: 69 Year
  Sex: Female
  Weight: 71.202 kg

DRUGS (1)
  1. ENBREL [Suspect]
     Indication: RHEUMATOID ARTHRITIS
     Dosage: 50 MG, QWK
     Dates: start: 20100101

REACTIONS (10)
  - IRRITABLE BOWEL SYNDROME [None]
  - DYSPNOEA [None]
  - HEADACHE [None]
  - URINARY TRACT INFECTION FUNGAL [None]
  - INITIAL INSOMNIA [None]
  - INJECTION SITE HAEMATOMA [None]
  - HYPERHIDROSIS [None]
  - FEELING HOT [None]
  - HOT FLUSH [None]
  - NIGHT SWEATS [None]
